FAERS Safety Report 8827851 (Version 1)
Quarter: 2012Q4

REPORT INFORMATION
  Report Type: Report from Study
  Country: CA (occurrence: CA)
  Receive Date: 20121005
  Receipt Date: 20121005
  Transmission Date: 20130627
  Serious: Yes (Hospitalization, Other)
  Sender: FDA-Public Use
  Company Number: CA-ABBOTT-12P-028-0987028-00

PATIENT
  Sex: Male
  Weight: 83.99 kg

DRUGS (1)
  1. LUPRON [Suspect]
     Indication: PROSTATE CANCER
     Dosage: 30 MG 4 month depot
     Route: 050
     Dates: start: 20100914

REACTIONS (2)
  - Gastrointestinal disorder [Unknown]
  - Intestinal obstruction [Unknown]
